FAERS Safety Report 21588272 (Version 3)
Quarter: 2023Q2

REPORT INFORMATION
  Report Type: Report from Study
  Country: US (occurrence: US)
  Receive Date: 20221114
  Receipt Date: 20230621
  Transmission Date: 20230721
  Serious: Yes (Other)
  Sender: FDA-Public Use
  Company Number: US-ABBVIE-4164610

PATIENT
  Age: 58 Year
  Sex: Female
  Weight: 65.317 kg

DRUGS (12)
  1. RINVOQ [Suspect]
     Active Substance: UPADACITINIB
     Indication: Rheumatoid arthritis
     Route: 048
     Dates: start: 20210823
  2. RINVOQ [Suspect]
     Active Substance: UPADACITINIB
     Indication: Rheumatoid arthritis
     Route: 048
     Dates: start: 202108
  3. RINVOQ [Suspect]
     Active Substance: UPADACITINIB
     Indication: Rheumatoid arthritis
     Route: 048
  4. GABAPENTIN [Concomitant]
     Active Substance: GABAPENTIN
     Indication: Product used for unknown indication
     Dosage: TIME INTERVAL: 0.33333333 DAYS
     Route: 048
     Dates: start: 2020
  5. covid-19 vaccine [Concomitant]
     Indication: COVID-19 immunisation
     Dosage: 1ST DOSE
     Route: 030
  6. covid-19 vaccine [Concomitant]
     Indication: COVID-19 immunisation
     Dosage: 2ND DOSE
     Route: 030
  7. covid-19 vaccine [Concomitant]
     Indication: COVID-19 immunisation
     Dosage: 3RD DOSE
     Route: 030
  8. MONTELUKAST SODIUM [Concomitant]
     Active Substance: MONTELUKAST SODIUM
     Indication: Product used for unknown indication
     Dosage: FREQUENCY: DAILY
     Route: 048
     Dates: start: 2018
  9. TEMAZEPAM [Concomitant]
     Active Substance: TEMAZEPAM
     Indication: Product used for unknown indication
     Dosage: DAILY
     Route: 048
     Dates: start: 2019, end: 20230325
  10. MELOXICAM [Concomitant]
     Active Substance: MELOXICAM
     Indication: Product used for unknown indication
     Dosage: DAILY
     Route: 048
  11. SIMVASTATIN [Concomitant]
     Active Substance: SIMVASTATIN
     Indication: Product used for unknown indication
     Dosage: DAILY
     Route: 048
     Dates: start: 2008
  12. CELEBREX [Concomitant]
     Active Substance: CELECOXIB
     Indication: Product used for unknown indication
     Dosage: DAILY
     Route: 048

REACTIONS (8)
  - Meniscus injury [Recovered/Resolved]
  - Upper respiratory tract infection [Recovered/Resolved]
  - Bronchitis [Recovered/Resolved]
  - Dehydration [Recovered/Resolved]
  - Arthralgia [Recovering/Resolving]
  - Subchondral insufficiency fracture [Recovered/Resolved]
  - Arthropathy [Not Recovered/Not Resolved]
  - Gait inability [Recovered/Resolved]

NARRATIVE: CASE EVENT DATE: 20210815
